FAERS Safety Report 8422539-4 (Version None)
Quarter: 2012Q2

REPORT INFORMATION
  Report Type: 
  Country: None (occurrence: None)
  Receive Date: 20120608
  Receipt Date: 20120607
  Transmission Date: 20120825
  Serious: No
  Sender: FDA-Public Use
  Company Number: US-PFIZER INC-2012137854

PATIENT
  Sex: Female
  Weight: 90.703 kg

DRUGS (3)
  1. SERTRALINE HYDROCHLORIDE [Suspect]
     Dosage: 150 MG (ONE TABLET OF 50MG AND ONE TABLET OF 100MG), 1X/DAY
     Route: 048
     Dates: start: 20120101
  2. AMBIEN [Concomitant]
     Dosage: UNK
  3. SERTRALINE HYDROCHLORIDE [Suspect]
     Indication: DEPRESSION
     Dosage: 50 MG, 1X/DAY
     Route: 048
     Dates: start: 20120201, end: 20120101

REACTIONS (1)
  - SOMNOLENCE [None]
